FAERS Safety Report 14367294 (Version 1)
Quarter: 2018Q1

REPORT INFORMATION
  Report Type: Spontaneous
  Country: IT (occurrence: IT)
  Receive Date: 20180109
  Receipt Date: 20180109
  Transmission Date: 20180509
  Serious: Yes (Other)
  Sender: FDA-Public Use
  Company Number: IT-SA-2018SA003612

PATIENT
  Age: 32 Year
  Sex: Male

DRUGS (3)
  1. BENTELAN [Concomitant]
     Active Substance: BETAMETHASONE SODIUM PHOSPHATE
     Route: 065
     Dates: start: 20171120
  2. LEVOCETIRIZINE [Suspect]
     Active Substance: LEVOCETIRIZINE
     Indication: HYPERSENSITIVITY
     Route: 048
     Dates: start: 201709, end: 20171120
  3. FRISTAMIN [Concomitant]
     Active Substance: LORATADINE
     Route: 065
     Dates: start: 201709

REACTIONS (4)
  - Pruritus generalised [Not Recovered/Not Resolved]
  - Skin warm [Not Recovered/Not Resolved]
  - Urticaria [Not Recovered/Not Resolved]
  - Weight increased [Unknown]

NARRATIVE: CASE EVENT DATE: 20171122
